FAERS Safety Report 17556268 (Version 5)
Quarter: 2021Q2

REPORT INFORMATION
  Report Type: Spontaneous
  Country: US (occurrence: US)
  Receive Date: 20200318
  Receipt Date: 20210604
  Transmission Date: 20210716
  Serious: Yes (Other)
  Sender: FDA-Public Use
  Company Number: US-PFIZER INC-2020117244

PATIENT
  Age: 64 Year
  Sex: Male

DRUGS (2)
  1. LYRICA [Suspect]
     Active Substance: PREGABALIN
     Dosage: UNK
  2. EQUATE ALLERGY RELIEF [CETIRIZINE HYDROCHLORIDE] [Concomitant]
     Dosage: ONCE

REACTIONS (6)
  - Chronic obstructive pulmonary disease [Unknown]
  - Visual impairment [Unknown]
  - Brain injury [Unknown]
  - Drug dependence [Unknown]
  - Withdrawal syndrome [Unknown]
  - Memory impairment [Unknown]
